FAERS Safety Report 16599987 (Version 2)
Quarter: 2019Q3

REPORT INFORMATION
  Report Type: Spontaneous
  Country: BE (occurrence: BE)
  Receive Date: 20190720
  Receipt Date: 20190828
  Transmission Date: 20191004
  Serious: Yes (Life-Threatening, Hospitalization, Congenital Anomaly, Other)
  Sender: FDA-Public Use
  Company Number: BE-ABBVIE-19K-013-2858485-00

PATIENT
  Age: 20 Year
  Sex: Male
  Weight: 105 kg

DRUGS (16)
  1. IBUPROFEN. [Suspect]
     Active Substance: IBUPROFEN
     Indication: ANALGESIC THERAPY
     Dosage: UNKNOWN DOSE 3 TABLETS 3X / D PDT 3-4 DAYS POST OP
     Route: 048
     Dates: start: 20190311, end: 20190314
  2. PARACETAMOL [Suspect]
     Active Substance: ACETAMINOPHEN
     Indication: ANALGESIC THERAPY
     Route: 048
     Dates: start: 20190311, end: 20190314
  3. PARACETAMOL [Suspect]
     Active Substance: ACETAMINOPHEN
     Indication: PERIOPERATIVE ANALGESIA
     Route: 042
     Dates: start: 20190311, end: 20190311
  4. LITICAN [Concomitant]
     Active Substance: ALIZAPRIDE HYDROCHLORIDE
     Indication: NAUSEA
     Route: 042
     Dates: start: 20190311, end: 20190311
  5. PROPOLIPID [Concomitant]
     Active Substance: PROPOFOL
     Indication: SURGERY
  6. CEFAZOLINE [Suspect]
     Active Substance: CEFAZOLIN SODIUM
     Indication: SURGERY
  7. DEXAMETHASONE. [Concomitant]
     Active Substance: DEXAMETHASONE
     Indication: GASTROINTESTINAL DISORDER PROPHYLAXIS
     Route: 042
     Dates: start: 20190311, end: 20190311
  8. KETAMINE [Concomitant]
     Active Substance: KETAMINE
     Indication: SURGERY
     Route: 042
     Dates: start: 20190311, end: 20190311
  9. SEVORANE [Suspect]
     Active Substance: SEVOFLURANE
     Indication: GENERAL ANAESTHESIA
     Route: 055
     Dates: start: 20190311, end: 20190311
  10. CEFAZOLINE [Suspect]
     Active Substance: CEFAZOLIN SODIUM
     Indication: ANTIBIOTIC PROPHYLAXIS
     Route: 042
     Dates: start: 20190311, end: 20190311
  11. TARADYL [Suspect]
     Active Substance: KETOROLAC TROMETHAMINE
     Indication: ANALGESIC THERAPY
     Route: 042
     Dates: start: 20190311, end: 20190311
  12. CATAPRESSAN [Concomitant]
     Active Substance: CLONIDINE
     Indication: PRODUCT USED FOR UNKNOWN INDICATION
     Route: 042
     Dates: start: 20190311, end: 20190311
  13. LISINOPRIL. [Concomitant]
     Active Substance: LISINOPRIL
     Indication: SURGERY
     Dosage: LISINOPRIL 2%
     Route: 042
     Dates: start: 20190311, end: 20190311
  14. SEVORANE [Suspect]
     Active Substance: SEVOFLURANE
     Route: 055
     Dates: start: 20170806
  15. PROPOLIPID [Concomitant]
     Active Substance: PROPOFOL
     Indication: INDUCTION OF ANAESTHESIA
     Dosage: 1%
     Route: 042
     Dates: start: 20190311, end: 20190311
  16. TRACRIUM [Concomitant]
     Active Substance: ATRACURIUM BESYLATE
     Indication: SURGERY
     Route: 042
     Dates: start: 20190311, end: 20190311

REACTIONS (11)
  - Hepatitis fulminant [Recovering/Resolving]
  - Pruritus [Recovering/Resolving]
  - Acne [Recovering/Resolving]
  - Asthenia [Recovering/Resolving]
  - Hepatic encephalopathy [Recovering/Resolving]
  - Pruritus generalised [Recovering/Resolving]
  - Hepatic failure [Unknown]
  - Post procedural complication [Unknown]
  - Coagulopathy [Recovering/Resolving]
  - Drug hypersensitivity [Recovering/Resolving]
  - Jaundice [Recovering/Resolving]

NARRATIVE: CASE EVENT DATE: 2019
